FAERS Safety Report 14527796 (Version 5)
Quarter: 2019Q1

REPORT INFORMATION
  Report Type: Spontaneous
  Country: US (occurrence: US)
  Receive Date: 20180213
  Receipt Date: 20190327
  Transmission Date: 20190417
  Serious: Yes (Hospitalization)
  Sender: FDA-Public Use
  Company Number: US-ACTELION-A-NJ2018-166925

PATIENT
  Age: 34 Year
  Sex: Female

DRUGS (4)
  1. VELETRI [Suspect]
     Active Substance: EPOPROSTENOL
     Indication: PULMONARY ARTERIAL HYPERTENSION
     Dosage: 26 NG/KG, PER MIN
     Route: 042
     Dates: start: 20160216
  2. AMBRISENTAN [Suspect]
     Active Substance: AMBRISENTAN
     Indication: PULMONARY HYPERTENSION
     Dosage: 5 MG, QD
     Route: 065
     Dates: start: 20160219
  3. ADCIRCA [Concomitant]
     Active Substance: TADALAFIL
  4. VELETRI [Suspect]
     Active Substance: EPOPROSTENOL
     Dosage: 23 NG/KG, PER MIN
     Route: 042

REACTIONS (9)
  - Device dislocation [Recovered/Resolved]
  - Diarrhoea [Unknown]
  - Back injury [Unknown]
  - Product preparation issue [Unknown]
  - Pain in jaw [Unknown]
  - Palpitations [Unknown]
  - Osteomyelitis [Unknown]
  - Flushing [Unknown]
  - Catheter management [Recovered/Resolved]

NARRATIVE: CASE EVENT DATE: 20180125
